FAERS Safety Report 17193989 (Version 1)
Quarter: 2019Q4

REPORT INFORMATION
  Report Type: Report from Study
  Country: US (occurrence: US)
  Receive Date: 20191223
  Receipt Date: 20191223
  Transmission Date: 20200122
  Serious: Yes (Other)
  Sender: FDA-Public Use
  Company Number: NVSC2019US075674

PATIENT
  Sex: Male

DRUGS (1)
  1. COSENTYX [Suspect]
     Active Substance: SECUKINUMAB
     Indication: ANKYLOSING SPONDYLITIS
     Dosage: 150 MG, Q4W (150MG Q 4 WEEKS X 5 WEEKS THEN 150MG Q 4 WEEKS)
     Route: 058
     Dates: start: 20190928

REACTIONS (1)
  - Ankylosing spondylitis [Unknown]
